FAERS Safety Report 8818778 (Version 1)
Quarter: 2012Q4

REPORT INFORMATION
  Report Type: 
  Country: US (occurrence: US)
  Receive Date: 20121001
  Receipt Date: 20121001
  Transmission Date: 20130627
  Serious: Yes (Other)
  Sender: FDA-Public Use
  Company Number: PHHY2012US083993

PATIENT
  Age: 85 Year
  Sex: Male

DRUGS (7)
  1. ASCRIPTIN BUFFERED REG STRENGTH TABLETS [Suspect]
     Indication: CARDIOVASCULAR EVENT PROPHYLAXIS
     Dosage: 8 DF, QD
     Route: 048
  2. ASCRIPTIN BUFFERED REG STRENGTH TABLETS [Suspect]
     Dosage: 4 DF
     Route: 048
  3. ASCRIPTIN BUFFERED REG STRENGTH TABLETS [Suspect]
     Dosage: 1 DF, BID
     Route: 048
  4. LIPITOR [Suspect]
     Indication: CARDIOVASCULAR EVENT PROPHYLAXIS
     Dosage: 25 mg, UNK
  5. LIPITOR [Suspect]
     Dosage: 50 mg, UNK
  6. LIPITOR [Suspect]
     Dosage: 100 mg, UNK
  7. COUMADIN [Concomitant]

REACTIONS (5)
  - Pulmonary thrombosis [Not Recovered/Not Resolved]
  - Oxygen consumption decreased [Unknown]
  - Abdominal discomfort [Recovered/Resolved]
  - Incorrect drug administration rate [Unknown]
  - Incorrect drug administration duration [Unknown]
